FAERS Safety Report 13644933 (Version 1)
Quarter: 2017Q2

REPORT INFORMATION
  Report Type: Spontaneous
  Country: US (occurrence: US)
  Receive Date: 20170612
  Receipt Date: 20170612
  Transmission Date: 20170830
  Serious: Yes (Other)
  Sender: FDA-Public Use
  Company Number: US-ROCHE-759081

PATIENT
  Age: 63 Year
  Sex: Female
  Weight: 71.7 kg

DRUGS (2)
  1. XELODA [Suspect]
     Active Substance: CAPECITABINE
     Indication: BREAST CANCER METASTATIC
     Dosage: DOSE: 500 MG 4 TABS BID
     Route: 048
  2. IXEMPRA [Concomitant]
     Active Substance: IXABEPILONE
     Route: 065

REACTIONS (3)
  - Ill-defined disorder [Unknown]
  - Abasia [Unknown]
  - Loss of personal independence in daily activities [Unknown]

NARRATIVE: CASE EVENT DATE: 20110208
